FAERS Safety Report 25448597 (Version 1)
Quarter: 2025Q2

REPORT INFORMATION
  Report Type: Spontaneous
  Country: CA (occurrence: CA)
  Receive Date: 20250618
  Receipt Date: 20250618
  Transmission Date: 20250717
  Serious: Yes (Other)
  Sender: NOVO NORDISK
  Company Number: None

PATIENT
  Age: 41 Year
  Sex: Female

DRUGS (4)
  1. OZEMPIC [Suspect]
     Active Substance: SEMAGLUTIDE
     Indication: Weight control
     Dosage: 1 MG, QW(EVERY 1 WEEKS (184 DAYS))
     Route: 058
  2. COLLAGEN [Concomitant]
     Active Substance: COLLAGEN
  3. MAGNESIUM [Concomitant]
     Active Substance: MAGNESIUM
  4. MIRENA [Concomitant]
     Active Substance: LEVONORGESTREL

REACTIONS (7)
  - Anger [Recovered/Resolved]
  - Breast discharge [Recovered/Resolved]
  - Intraductal proliferative breast lesion [Recovered/Resolved]
  - Invasive ductal breast carcinoma [Recovered/Resolved]
  - Mastectomy [Recovered/Resolved]
  - Wrong technique in product usage process [Unknown]
  - Product use in unapproved indication [Unknown]
